FAERS Safety Report 4332286-6 (Version None)
Quarter: 2004Q2

REPORT INFORMATION
  Report Type: 
  Country: None (occurrence: None)
  Receive Date: 20040405
  Receipt Date: 20040330
  Transmission Date: 20050107
  Serious: Yes (Death)
  Sender: FDA-Public Use
  Company Number: GR-MERCK-0403GRC00017

PATIENT
  Sex: Female

DRUGS (2)
  1. [THERAPY UNSPECIFIED] [Concomitant]
     Indication: PANCREATITIS ACUTE
     Route: 065
  2. INVANZ [Suspect]
     Indication: PANCREATITIS ACUTE
     Route: 042

REACTIONS (2)
  - AGRANULOCYTOSIS [None]
  - DEATH [None]
